FAERS Safety Report 7090918-6 (Version None)
Quarter: 2010Q4

REPORT INFORMATION
  Report Type: 
  Country: None (occurrence: None)
  Receive Date: 20101109
  Receipt Date: 20101027
  Transmission Date: 20110411
  Serious: Yes (Hospitalization, Other)
  Sender: FDA-Public Use
  Company Number: US-ELI_LILLY_AND_COMPANY-US201010007152

PATIENT
  Age: 44 Year
  Sex: Female

DRUGS (3)
  1. FORTEO [Suspect]
     Indication: OSTEOPOROSIS
     Dosage: 20 UG, DAILY (1/D)
  2. ONDANSETRON [Concomitant]
     Dosage: 4 MG, EVERY 6 HRS
  3. DRONABINOL [Concomitant]
     Dosage: 10 MG, 2/D

REACTIONS (9)
  - COUGH [None]
  - HIP FRACTURE [None]
  - JUDGEMENT IMPAIRED [None]
  - MALABSORPTION [None]
  - MEDICATION ERROR [None]
  - NAUSEA [None]
  - RIB FRACTURE [None]
  - VOMITING [None]
  - WEIGHT DECREASED [None]
